FAERS Safety Report 24984336 (Version 2)
Quarter: 2025Q2

REPORT INFORMATION
  Report Type: Spontaneous
  Country: US (occurrence: US)
  Receive Date: 20250219
  Receipt Date: 20250606
  Transmission Date: 20250717
  Serious: Yes (Other)
  Sender: JOHNSON AND JOHNSON
  Company Number: US-JNJFOC-20250218855

PATIENT
  Sex: Female

DRUGS (3)
  1. RYBREVANT [Suspect]
     Active Substance: AMIVANTAMAB-VMJW
     Indication: Lung neoplasm malignant
     Dates: start: 20250204
  2. BENADRYL [Concomitant]
     Active Substance: DIPHENHYDRAMINE HYDROCHLORIDE
     Indication: Product used for unknown indication
  3. COMPAZINE [Concomitant]
     Active Substance: PROCHLORPERAZINE MALEATE
     Indication: Product used for unknown indication

REACTIONS (9)
  - Hypokalaemia [Unknown]
  - Flushing [Unknown]
  - Erythema [Unknown]
  - Rash [Unknown]
  - Hyperhidrosis [Unknown]
  - Abdominal pain [Unknown]
  - Hyponatraemia [Unknown]
  - Tachycardia [Unknown]
  - Oxygen saturation abnormal [Unknown]
